FAERS Safety Report 5530523-3 (Version None)
Quarter: 2007Q4

REPORT INFORMATION
  Report Type: 
  Country: None (occurrence: None)
  Receive Date: 20071130
  Receipt Date: 20071123
  Transmission Date: 20080405
  Serious: Yes (Hospitalization)
  Sender: FDA-Public Use
  Company Number: JP-AVENTIS-200720810GDDC

PATIENT
  Age: 42 Year
  Sex: Male

DRUGS (4)
  1. MINIRIN [Suspect]
     Indication: DIABETES INSIPIDUS
     Route: 045
  2. MEQUITAZINE [Concomitant]
     Route: 048
  3. AMBROXOL [Concomitant]
     Route: 048
  4. CLENBUTEROL HYDROCHLORIDE [Concomitant]
     Route: 048

REACTIONS (3)
  - ABDOMINAL DISTENSION [None]
  - FALL [None]
  - HYPONATRAEMIA [None]
